FAERS Safety Report 4713126-X (Version None)
Quarter: 2005Q3

REPORT INFORMATION
  Report Type: 
  Country: None (occurrence: None)
  Receive Date: 20050713
  Receipt Date: 20050609
  Transmission Date: 20060218
  Serious: Yes (Other)
  Sender: FDA-Public Use
  Company Number: 2005UW10222

PATIENT
  Age: 21 Year
  Sex: Male

DRUGS (6)
  1. SEROQUEL [Suspect]
     Indication: SCHIZOPHRENIA
     Route: 048
     Dates: start: 20040626
  2. SEROQUEL [Suspect]
     Dosage: 200 MG QAM, 600 MG QHS
     Route: 048
     Dates: end: 20050301
  3. SEROQUEL [Suspect]
     Route: 048
     Dates: start: 20050301
  4. FLUANXOL [Concomitant]
     Route: 030
  5. OLANZAPINE [Concomitant]
  6. EFFEXOR [Concomitant]

REACTIONS (4)
  - AGGRESSION [None]
  - ANGER [None]
  - DRUG ADMINISTRATION ERROR [None]
  - SEDATION [None]
